FAERS Safety Report 5268446-X (Version None)
Quarter: 2007Q1

REPORT INFORMATION
  Report Type: 
  Country: None (occurrence: None)
  Receive Date: 20070319
  Receipt Date: 20070316
  Transmission Date: 20070707
  Serious: Yes (Hospitalization)
  Sender: FDA-Public Use
  Company Number: DE-GLAXOSMITHKLINE-D0052654A

PATIENT
  Age: 41 Year
  Sex: Male

DRUGS (2)
  1. QUILONUM RETARD [Suspect]
     Dosage: 450MG SEE DOSAGE TEXT
     Route: 048
     Dates: start: 20070315, end: 20070315
  2. ALCOHOL [Suspect]
     Route: 048

REACTIONS (4)
  - ABDOMINAL PAIN [None]
  - INTENTIONAL OVERDOSE [None]
  - SUICIDE ATTEMPT [None]
  - VOMITING [None]
